FAERS Safety Report 16351907 (Version 1)
Quarter: 2019Q2

REPORT INFORMATION
  Report Type: Spontaneous
  Country: US (occurrence: US)
  Receive Date: 20190524
  Receipt Date: 20190524
  Transmission Date: 20190711
  Serious: No
  Sender: FDA-Public Use
  Company Number: US-TEVA-2019-US-1052296

PATIENT
  Sex: Female

DRUGS (1)
  1. CLOTRIMAZOLE AND BETAMETHASON DIPROPIONATE [Suspect]
     Active Substance: BETAMETHASONE\CLOTRIMAZOLE
     Indication: LICHEN SCLEROSUS
     Dosage: DOSE STRENGTH:   1%/0.05%
     Route: 065

REACTIONS (2)
  - Lichen sclerosus [Unknown]
  - Pruritus [Unknown]
